FAERS Safety Report 17140437 (Version 1)
Quarter: 2019Q4

REPORT INFORMATION
  Report Type: Spontaneous
  Country: US (occurrence: US)
  Receive Date: 20191211
  Receipt Date: 20191211
  Transmission Date: 20200122
  Serious: No
  Sender: FDA-Public Use
  Company Number: US-UCBSA-2016011111

PATIENT
  Sex: Female

DRUGS (8)
  1. ESLICARBAZEPINE [Concomitant]
     Active Substance: ESLICARBAZEPINE
     Indication: SEIZURE PROPHYLAXIS
     Dosage: 600 UNKNOWN UNIT
  2. VIMPAT [Suspect]
     Active Substance: LACOSAMIDE
     Indication: SEIZURE PROPHYLAXIS
     Dosage: 200 UNKNOWN UNIT
  3. LORAZEPAM. [Concomitant]
     Active Substance: LORAZEPAM
     Indication: SEIZURE PROPHYLAXIS
     Dosage: UNK, AS NEEDED (PRN)
  4. ESLICARBAZEPINE [Concomitant]
     Active Substance: ESLICARBAZEPINE
     Dosage: 900 UNKNOWN UNIT
  5. VIMPAT [Suspect]
     Active Substance: LACOSAMIDE
     Dosage: 100 UNKNOWN UNIT
  6. KEPPRA [Suspect]
     Active Substance: LEVETIRACETAM
     Indication: SEIZURE PROPHYLAXIS
     Dosage: 1000 MG, 3X/DAY (TID)
  7. ESLICARBAZEPINE [Concomitant]
     Active Substance: ESLICARBAZEPINE
     Dosage: 600 UNKNOWN UNIT
  8. VIMPAT [Suspect]
     Active Substance: LACOSAMIDE
     Dosage: 200 UNKNOWN UNIT

REACTIONS (4)
  - Somnolence [Unknown]
  - Drug ineffective [Unknown]
  - Off label use [Unknown]
  - Cognitive disorder [Unknown]
